FAERS Safety Report 6119470-6 (Version None)
Quarter: 2009Q1

REPORT INFORMATION
  Report Type: 
  Country: None (occurrence: None)
  Receive Date: 20090316
  Receipt Date: 20090306
  Transmission Date: 20090719
  Serious: Yes (Hospitalization)
  Sender: FDA-Public Use
  Company Number: A0773148A

PATIENT
  Age: 52 Year
  Sex: Male

DRUGS (6)
  1. AVANDIA [Suspect]
     Indication: DIABETES MELLITUS
     Dosage: 4MG TWICE PER DAY
     Route: 048
     Dates: start: 20020429, end: 20080601
  2. NORVASC [Concomitant]
  3. OMEPRAZOLE [Concomitant]
  4. ZITHROMAX [Concomitant]
  5. ACIPHEX [Concomitant]
  6. ALTACE [Concomitant]

REACTIONS (1)
  - CEREBROVASCULAR ACCIDENT [None]
